FAERS Safety Report 14992091 (Version 1)
Quarter: 2018Q2

REPORT INFORMATION
  Report Type: Spontaneous
  Country: CN (occurrence: CN)
  Receive Date: 20180608
  Receipt Date: 20180608
  Transmission Date: 20180711
  Serious: Yes (Hospitalization, Other)
  Sender: FDA-Public Use
  Company Number: CN-GILEAD-2018-0342741

PATIENT
  Age: 63 Year
  Sex: Female

DRUGS (1)
  1. HEPSERA [Suspect]
     Active Substance: ADEFOVIR DIPIVOXIL
     Indication: HEPATITIS B
     Dosage: 10 MG, QD
     Route: 048
     Dates: start: 20100315, end: 20180412

REACTIONS (10)
  - Hypophosphataemia [Unknown]
  - Spinal compression fracture [Unknown]
  - Chest pain [Unknown]
  - Osteoporosis [Unknown]
  - Blood phosphorus decreased [Unknown]
  - Back pain [Unknown]
  - Rib fracture [Unknown]
  - Disease recurrence [Unknown]
  - Hypokinesia [Unknown]
  - Gait disturbance [Unknown]

NARRATIVE: CASE EVENT DATE: 20170402
